FAERS Safety Report 5032684-1 (Version None)
Quarter: 2006Q2

REPORT INFORMATION
  Report Type: 
  Country: None (occurrence: None)
  Receive Date: 20060620
  Receipt Date: 20060609
  Transmission Date: 20061013
  Serious: Yes (Death, Hospitalization)
  Sender: FDA-Public Use
  Company Number: 2006015066

PATIENT
  Age: 65 Year
  Sex: Female
  Weight: 96.6162 kg

DRUGS (1)
  1. BEXTRA [Suspect]
     Indication: OSTEOARTHRITIS
     Dosage: 10 MG (10 MG, 1 IN 1 D),
     Dates: start: 20041115, end: 20050213

REACTIONS (2)
  - MYOCARDIAL INFARCTION [None]
  - SINUS TACHYCARDIA [None]
